FAERS Safety Report 7070174-5 (Version None)
Quarter: 2010Q4

REPORT INFORMATION
  Report Type: 
  Country: None (occurrence: None)
  Receive Date: 20101028
  Receipt Date: 20100920
  Transmission Date: 20110411
  Serious: No
  Sender: FDA-Public Use
  Company Number: US-WYE-H17769210

PATIENT
  Sex: Male

DRUGS (3)
  1. PROTONIX [Suspect]
     Indication: GASTROOESOPHAGEAL REFLUX DISEASE
  2. PROTONIX [Suspect]
     Indication: HYPERCHLORHYDRIA
  3. ENALAPRIL [Suspect]
     Indication: HYPERTENSION
     Dosage: 10 MG, FREQUENCY UNKNOWN
     Dates: start: 20040101, end: 20100101

REACTIONS (5)
  - CHEST DISCOMFORT [None]
  - COUGH [None]
  - DRUG EFFECT DECREASED [None]
  - FLATULENCE [None]
  - INTENTIONAL DRUG MISUSE [None]
